FAERS Safety Report 8331657-0 (Version None)
Quarter: 2012Q2

REPORT INFORMATION
  Report Type: 
  Country: None (occurrence: None)
  Receive Date: 20120502
  Receipt Date: 20110603
  Transmission Date: 20120825
  Serious: No
  Sender: FDA-Public Use
  Company Number: CA-ASTRAZENECA-2011SE34354

PATIENT
  Age: 70 Year
  Sex: Female

DRUGS (5)
  1. ANTIANXIETY MED [Concomitant]
  2. ENTOCORT EC [Suspect]
     Route: 048
  3. CARAFATE [Concomitant]
  4. ANTIDEPRESSANT MED [Concomitant]
  5. ENTOCORT EC [Suspect]
     Indication: ABDOMINAL PAIN
     Route: 048
     Dates: start: 20110419, end: 20110421

REACTIONS (4)
  - ABDOMINAL TENDERNESS [None]
  - DRUG INEFFECTIVE [None]
  - ABDOMINAL PAIN [None]
  - ABDOMINAL DISCOMFORT [None]
